FAERS Safety Report 17980786 (Version 1)
Quarter: 2020Q3

REPORT INFORMATION
  Report Type: Spontaneous
  Country: US (occurrence: US)
  Receive Date: 20200704
  Receipt Date: 20200704
  Transmission Date: 20201103
  Serious: Yes (Hospitalization, Other)
  Sender: FDA-Public Use
  Company Number: US-MICRO LABS LIMITED-ML2020-01972

PATIENT
  Age: 69 Year
  Sex: Female

DRUGS (6)
  1. DOXAZOSIN [Concomitant]
     Active Substance: DOXAZOSIN MESYLATE
  2. METOPROLOL. [Concomitant]
     Active Substance: METOPROLOL
  3. AMIODARONE [Concomitant]
     Active Substance: AMIODARONE
  4. APIXABAN [Suspect]
     Active Substance: APIXABAN
  5. HEPARIN [Suspect]
     Active Substance: HEPARIN SODIUM
  6. DILTIAZEM. [Concomitant]
     Active Substance: DILTIAZEM

REACTIONS (4)
  - Procedural haemorrhage [Recovered/Resolved]
  - Tumour haemorrhage [Recovered/Resolved]
  - Necrosis [Recovered/Resolved]
  - Haematoma [Recovered/Resolved]
